FAERS Safety Report 10218904 (Version 1)
Quarter: 2014Q2

REPORT INFORMATION
  Report Type: Spontaneous
  Country: US (occurrence: US)
  Receive Date: 20140605
  Receipt Date: 20140605
  Transmission Date: 20141212
  Serious: Yes (Hospitalization)
  Sender: FDA-Public Use
  Company Number: US-BAYER-2014-079635

PATIENT
  Sex: Male

DRUGS (2)
  1. ADEMPAS [Suspect]
     Dosage: UNK
  2. TYVASO [Concomitant]
     Dosage: UNK

REACTIONS (2)
  - Pulmonary alveolar haemorrhage [None]
  - Haemoptysis [None]
